FAERS Safety Report 7152288-4 (Version None)
Quarter: 2010Q4

REPORT INFORMATION
  Report Type: 
  Country: None (occurrence: None)
  Receive Date: 20101209
  Receipt Date: 20101209
  Transmission Date: 20110411
  Serious: Yes (Other)
  Sender: FDA-Public Use
  Company Number: None

PATIENT
  Age: 45 Year
  Sex: Male
  Weight: 64.8644 kg

DRUGS (1)
  1. DIFFERIN [Suspect]
     Indication: ACNE
     Dosage: SMALL AMOUNT ONCE CUTANEOUS
     Route: 003
     Dates: start: 20100201, end: 20101101

REACTIONS (1)
  - ALOPECIA [None]
